FAERS Safety Report 11510930 (Version 2)
Quarter: 2015Q4

REPORT INFORMATION
  Report Type: Spontaneous
  Country: DE (occurrence: DE)
  Receive Date: 20150915
  Receipt Date: 20151008
  Transmission Date: 20160304
  Serious: Yes (Hospitalization, Other)
  Sender: FDA-Public Use
  Company Number: PHHY2015DE089462

PATIENT
  Sex: Female
  Weight: 60 kg

DRUGS (5)
  1. FOSTER                             /06206901/ [Concomitant]
     Indication: CHRONIC OBSTRUCTIVE PULMONARY DISEASE
     Dosage: 2 DF (2 PUFFS), BID
     Route: 065
     Dates: start: 20130409
  2. GLIVEC [Suspect]
     Active Substance: IMATINIB MESYLATE
     Indication: INTESTINAL RESECTION
  3. PRETERAX N [Concomitant]
     Indication: HYPERTENSION
     Dosage: 1 DF (2.5/0.625 MG), QD
     Route: 065
     Dates: start: 201409
  4. GLIVEC [Suspect]
     Active Substance: IMATINIB MESYLATE
     Indication: GASTROINTESTINAL STROMAL CANCER
  5. GLIVEC [Suspect]
     Active Substance: IMATINIB MESYLATE
     Indication: SMALL INTESTINE CARCINOMA
     Dosage: 1 DF (1 TABLET), QD
     Route: 065
     Dates: start: 20101115, end: 201305

REACTIONS (4)
  - Retinal haemorrhage [Unknown]
  - Visual acuity reduced [Unknown]
  - Neovascular age-related macular degeneration [Not Recovered/Not Resolved]
  - Gastric ulcer haemorrhage [Unknown]

NARRATIVE: CASE EVENT DATE: 20130305
